FAERS Safety Report 13247334 (Version 1)
Quarter: 2017Q1

REPORT INFORMATION
  Report Type: Spontaneous
  Country: US (occurrence: US)
  Receive Date: 20170217
  Receipt Date: 20170217
  Transmission Date: 20170428
  Serious: No
  Sender: FDA-Public Use
  Company Number: US-SHIRE-US201702934

PATIENT
  Age: 62 Year
  Sex: Female
  Weight: 54.42 kg

DRUGS (1)
  1. XIIDRA [Suspect]
     Active Substance: LIFITEGRAST
     Indication: PRODUCT USED FOR UNKNOWN INDICATION
     Dosage: UNK, 2X/DAY:BID
     Route: 047

REACTIONS (2)
  - Instillation site reaction [Recovered/Resolved]
  - Wrong technique in product usage process [Not Recovered/Not Resolved]
